FAERS Safety Report 17973550 (Version 2)
Quarter: 2020Q3

REPORT INFORMATION
  Report Type: Report from Study
  Country: BR (occurrence: BR)
  Receive Date: 20200702
  Receipt Date: 20200908
  Transmission Date: 20201103
  Serious: Yes (Other)
  Sender: FDA-Public Use
  Company Number: BR-UCBSA-2020025395

PATIENT
  Age: 54 Year
  Sex: Female
  Weight: 52 kg

DRUGS (5)
  1. LEFLUNOMIDA [Concomitant]
     Active Substance: LEFLUNOMIDE
     Indication: RHEUMATOID ARTHRITIS
     Dosage: UNK UNK, ONCE DAILY (QD)
     Route: 048
     Dates: start: 2011
  2. OMEPRAZOL [OMEPRAZOLE] [Concomitant]
     Active Substance: OMEPRAZOLE
     Indication: GASTRITIS
     Dosage: UNK UNK, 2X/DAY (BID)
     Route: 048
     Dates: start: 2020
  3. CERTOLIZUMAB PEGOL RA [Suspect]
     Active Substance: CERTOLIZUMAB PEGOL
     Indication: RHEUMATOID ARTHRITIS
     Dosage: 200 MILLIGRAM, EV 15 DAYS
     Route: 058
     Dates: start: 20181123
  4. ALENIA [BUDESONIDE;FORMOTEROL FUMARATE] [Concomitant]
     Active Substance: BUDESONIDE\FORMOTEROL FUMARATE
     Indication: PULMONARY FIBROSIS
     Dosage: UNK UNK, 3X/DAY (TID)
     Route: 048
     Dates: start: 2015
  5. BUSONID [Concomitant]
     Active Substance: BUDESONIDE
     Indication: PULMONARY FIBROSIS
     Dosage: UNK UNK, 3X/DAY (TID)
     Route: 048
     Dates: start: 2015

REACTIONS (6)
  - Arthralgia [Recovering/Resolving]
  - Pulmonary fibrosis [Recovering/Resolving]
  - Product availability issue [Unknown]
  - Pain in extremity [Recovering/Resolving]
  - Therapy interrupted [Unknown]
  - Weight decreased [Recovering/Resolving]

NARRATIVE: CASE EVENT DATE: 20200413
